FAERS Safety Report 9232192 (Version 3)
Quarter: 2013Q2

REPORT INFORMATION
  Report Type: Spontaneous
  Country: US (occurrence: US)
  Receive Date: 20130415
  Receipt Date: 20130514
  Transmission Date: 20140414
  Serious: Yes (Other)
  Sender: FDA-Public Use
  Company Number: US-BAXTER-2013BAX013511

PATIENT
  Age: 50 Year
  Sex: Female

DRUGS (2)
  1. LACTATED RINGER^S INJECTION, USP [Suspect]
     Indication: DETOXIFICATION
     Route: 042
     Dates: start: 20130408
  2. LACTATED RINGER^S INJECTION, USP [Suspect]
     Indication: RENAL DISORDER
     Route: 042
     Dates: start: 201301

REACTIONS (4)
  - Pneumonia [Recovered/Resolved]
  - Pleurisy [Recovered/Resolved]
  - Product container issue [Unknown]
  - Product contamination [None]
